FAERS Safety Report 20730618 (Version 1)
Quarter: 2022Q2

REPORT INFORMATION
  Report Type: Report from Study
  Country: JP (occurrence: JP)
  Receive Date: 20220420
  Receipt Date: 20220420
  Transmission Date: 20220720
  Serious: Yes (Hospitalization)
  Sender: FDA-Public Use
  Company Number: JP-MYLANLABS-2022M1028094

PATIENT
  Age: 77 Year
  Sex: Male

DRUGS (9)
  1. CYCLOSPORINE [Suspect]
     Active Substance: CYCLOSPORINE
     Indication: Ulcerative keratitis
     Dosage: 100 MILLIGRAM, QD
     Route: 048
     Dates: start: 2014
  2. CYCLOSPORINE [Suspect]
     Active Substance: CYCLOSPORINE
     Indication: Immunosuppressant drug therapy
     Dosage: 100 MILLIGRAM, QD
     Route: 048
     Dates: start: 2016
  3. CYCLOSPORINE [Suspect]
     Active Substance: CYCLOSPORINE
     Dosage: 50 MILLIGRAM, QD
     Route: 048
     Dates: start: 2016
  4. TACROLIMUS [Suspect]
     Active Substance: TACROLIMUS
     Indication: Ulcerative keratitis
     Dosage: 0.1 PERCENT
     Route: 061
     Dates: start: 2014
  5. TACROLIMUS [Suspect]
     Active Substance: TACROLIMUS
     Indication: Immunosuppressant drug therapy
     Dosage: 0.1 PERCENT
     Route: 061
     Dates: start: 2016
  6. BETAMETHASONE [Suspect]
     Active Substance: BETAMETHASONE
     Indication: Ulcerative keratitis
     Dosage: 0.1 PERCENT, QID
     Route: 061
     Dates: start: 2014
  7. BETAMETHASONE [Suspect]
     Active Substance: BETAMETHASONE
     Indication: Immunosuppressant drug therapy
     Dosage: 0.1 PERCENT, QID
     Route: 061
     Dates: start: 2016
  8. METHYLPREDNISOLONE [Suspect]
     Active Substance: METHYLPREDNISOLONE
     Indication: Ulcerative keratitis
     Dosage: 500 MILLIGRAM, QD
     Route: 042
  9. METHYLPREDNISOLONE [Suspect]
     Active Substance: METHYLPREDNISOLONE
     Dosage: 500 MILLIGRAM, QD
     Route: 042

REACTIONS (4)
  - Corneal endotheliitis [Recovering/Resolving]
  - Cytomegalovirus infection [Recovering/Resolving]
  - Mydriasis [Unknown]
  - Cataract [Unknown]
